FAERS Safety Report 8993006 (Version 5)
Quarter: 2013Q2

REPORT INFORMATION
  Report Type: Spontaneous
  Country: MX (occurrence: MX)
  Receive Date: 20130102
  Receipt Date: 20130401
  Transmission Date: 20140414
  Serious: Yes (Other)
  Sender: FDA-Public Use
  Company Number: PHHY2012MX121046

PATIENT
  Age: 60 Year
  Sex: Male

DRUGS (10)
  1. DIOVAN [Suspect]
     Indication: HYPERTENSION
     Dosage: 320 MG, QD
     Route: 048
     Dates: start: 201209
  2. LEXAPRO [Concomitant]
     Indication: ANXIOLYTIC THERAPY
     Dosage: 1 DF, DAILY
     Route: 048
     Dates: start: 201209
  3. ASPIRINA PROTECT [Concomitant]
     Indication: CARDIAC DISORDER
     Dosage: 1 DF, DAILY
     Dates: start: 201209
  4. LIPITOR [Concomitant]
     Indication: CARDIAC DISORDER
     Dosage: 0.5 DF, DAILY
     Route: 048
     Dates: start: 201209
  5. EVIPRESS [Concomitant]
     Indication: HYPERTENSION
     Dosage: 1 DF, DAILY
     Route: 048
     Dates: start: 201209
  6. NEBIVOLOL (LOVIVON) [Concomitant]
     Indication: BLOOD PRESSURE
     Dosage: 1 DF, DAILY
     Dates: start: 201205
  7. TAFIL [Concomitant]
     Indication: FEELING OF RELAXATION
     Dosage: 0.5 DF, DAILY
     Route: 048
     Dates: start: 201209
  8. SECOTEX [Concomitant]
     Indication: PROSTATIC DISORDER
     Dosage: 1 DF, DAILY
     Route: 048
     Dates: start: 201301
  9. LEVOFLOXACINA [Concomitant]
     Indication: PROSTATIC DISORDER
     Dosage: 1 DF, DAILY
     Route: 048
     Dates: start: 201302, end: 201302
  10. LOVIBON [Concomitant]
     Indication: HYPERTENSION
     Dosage: 1 DF, DAILY
     Route: 048
     Dates: start: 201209

REACTIONS (10)
  - Angina pectoris [Not Recovered/Not Resolved]
  - Heart rate increased [Recovered/Resolved]
  - Chest discomfort [Recovered/Resolved]
  - Benign prostatic hyperplasia [Not Recovered/Not Resolved]
  - Prostatic specific antigen increased [Not Recovered/Not Resolved]
  - Dysuria [Not Recovered/Not Resolved]
  - Infection [Not Recovered/Not Resolved]
  - Prostatic disorder [Not Recovered/Not Resolved]
  - Dizziness [Not Recovered/Not Resolved]
  - Fatigue [Not Recovered/Not Resolved]
